FAERS Safety Report 4489012-X (Version None)
Quarter: 2004Q4

REPORT INFORMATION
  Report Type: 
  Country: None (occurrence: None)
  Receive Date: 20041029
  Receipt Date: 20041022
  Transmission Date: 20050328
  Serious: Yes (Hospitalization)
  Sender: FDA-Public Use
  Company Number: US-AMGEN-US096572

PATIENT
  Sex: Female

DRUGS (1)
  1. ARANESP [Suspect]
     Indication: ANAEMIA OF MALIGNANT DISEASE
     Dates: start: 20040928, end: 20041001

REACTIONS (11)
  - ABDOMINAL PAIN UPPER [None]
  - APHASIA [None]
  - CONFUSIONAL STATE [None]
  - CONTUSION [None]
  - FALL [None]
  - FATIGUE [None]
  - FEELING COLD [None]
  - HEADACHE [None]
  - INFECTION [None]
  - ORTHOSTATIC HYPOTENSION [None]
  - SYNCOPE [None]
